FAERS Safety Report 4784952-6 (Version None)
Quarter: 2005Q3

REPORT INFORMATION
  Report Type: 
  Country: None (occurrence: None)
  Receive Date: 20050928
  Receipt Date: 20050914
  Transmission Date: 20060218
  Serious: Yes (Other)
  Sender: FDA-Public Use
  Company Number: USA0508106270

PATIENT
  Age: 9 Year
  Sex: Male
  Weight: 36 kg

DRUGS (1)
  1. STRATTERA [Suspect]
     Indication: ATTENTION DEFICIT/HYPERACTIVITY DISORDER
     Dosage: 50 MG/1 DAY
     Dates: start: 20041129

REACTIONS (3)
  - ERYTHEMA MULTIFORME [None]
  - HAEMATOCRIT DECREASED [None]
  - VIRAL UPPER RESPIRATORY TRACT INFECTION [None]
